FAERS Safety Report 9696840 (Version 1)
Quarter: 2013Q4

REPORT INFORMATION
  Report Type: Spontaneous
  Country: US (occurrence: US)
  Receive Date: 20131119
  Receipt Date: 20131119
  Transmission Date: 20140711
  Serious: No
  Sender: FDA-Public Use
  Company Number: US-GILEAD-2007-0013612

PATIENT
  Sex: Female
  Weight: 67.13 kg

DRUGS (14)
  1. LETAIRIS [Suspect]
     Indication: PULMONARY ARTERIAL HYPERTENSION
     Route: 048
     Dates: start: 20070730
  2. BONIVA [Concomitant]
     Route: 048
  3. BUMEX [Concomitant]
     Route: 048
  4. PLAQUENIL [Concomitant]
     Route: 048
  5. PAXIL [Concomitant]
     Route: 048
  6. TYLENOL [Concomitant]
     Route: 048
  7. TRAZODONE [Concomitant]
     Route: 048
  8. FLONASE [Concomitant]
     Route: 045
  9. NEXIUM [Concomitant]
     Route: 048
  10. ADVAIR [Concomitant]
     Dosage: 500/50 DOSAGE
     Route: 055
  11. ALEVE [Concomitant]
     Route: 048
  12. FERROUS SULFATE [Concomitant]
     Route: 048
  13. CLONAZEPAM [Concomitant]
     Route: 048
  14. POTASSIUM CHLORIDE [Concomitant]
     Route: 048

REACTIONS (1)
  - Abdominal discomfort [Unknown]
